FAERS Safety Report 8812231 (Version 1)
Quarter: 2012Q4

REPORT INFORMATION
  Report Type: 
  Country: US (occurrence: US)
  Receive Date: 20120927
  Receipt Date: 20120927
  Transmission Date: 20130627
  Serious: Yes (Hospitalization, Other)
  Sender: FDA-Public Use
  Company Number: US-BAYER-2012-070482

PATIENT
  Age: 26 Year
  Sex: Female

DRUGS (3)
  1. LEVONORGESTREL [Suspect]
     Dosage: 20 ?g/d, CONT
     Route: 015
     Dates: start: 20120430
  2. MOTRIN [Concomitant]
     Indication: PROPHYLAXIS
     Dosage: 800 mg, UNK
     Dates: start: 20120430, end: 20120430
  3. LAMICTAL [Concomitant]
     Indication: EPILEPSY
     Dosage: 250 mg, QD

REACTIONS (4)
  - Ovarian cyst ruptured [None]
  - Fungal infection [Recovered/Resolved]
  - Convulsion [None]
  - Pelvic pain [None]
